FAERS Safety Report 4636985-8 (Version None)
Quarter: 2005Q2

REPORT INFORMATION
  Report Type: 
  Country: None (occurrence: None)
  Receive Date: 20050415
  Receipt Date: 20050307
  Transmission Date: 20051028
  Serious: Yes (Hospitalization)
  Sender: FDA-Public Use
  Company Number: 2005S1001015

PATIENT
  Age: 55 Year
  Sex: Male
  Weight: 94.8018 kg

DRUGS (7)
  1. CLONIDINE HCL [Suspect]
     Indication: DRUG USE FOR UNKNOWN INDICATION
     Dosage: 0.2 MG; QD; PO
     Route: 048
     Dates: start: 20050207, end: 20050207
  2. LOTREL [Suspect]
     Indication: HYPERTENSION
     Dosage: QD;PO
     Route: 048
  3. LOTREL [Concomitant]
  4. LIPITOR [Concomitant]
  5. VENLAFAXINE HCL [Concomitant]
  6. HYDROCHLORIDE [Concomitant]
  7. SIMVASTATIN [Concomitant]

REACTIONS (4)
  - BRADYCARDIA [None]
  - DRY MOUTH [None]
  - HYPOTENSION [None]
  - MEDICATION ERROR [None]
